FAERS Safety Report 9678046 (Version 1)
Quarter: 2013Q4

REPORT INFORMATION
  Report Type: Spontaneous
  Country: CA (occurrence: None)
  Receive Date: 20131106
  Receipt Date: 20131106
  Transmission Date: 20140711
  Serious: Yes (Hospitalization, Other)
  Sender: FDA-Public Use
  Company Number: FK201304817

PATIENT
  Age: 59 Year
  Sex: Male

DRUGS (2)
  1. METOPROLOL [Suspect]
     Indication: ATRIAL FIBRILLATION
  2. WARFARIN (WARFARIN) [Concomitant]

REACTIONS (1)
  - Thalamus haemorrhage [None]
